FAERS Safety Report 7734060-7 (Version None)
Quarter: 2011Q3

REPORT INFORMATION
  Report Type: 
  Country: None (occurrence: None)
  Receive Date: 20110901
  Receipt Date: 20110818
  Transmission Date: 20111222
  Serious: Yes (Other)
  Sender: FDA-Public Use
  Company Number: KAD201108-000003

PATIENT
  Sex: Female

DRUGS (2)
  1. INTERFERON [Suspect]
     Dosage: ONCE PER WEEK, SUBCUTANEOUS
     Route: 058
  2. RIBASPHERE [Suspect]
     Dosage: 600 MG AM, 400 MG PM

REACTIONS (3)
  - RASH [None]
  - WHITE BLOOD CELL COUNT DECREASED [None]
  - VAGINAL INFECTION [None]
